FAERS Safety Report 25524322 (Version 1)
Quarter: 2025Q3

REPORT INFORMATION
  Report Type: Spontaneous
  Country: US (occurrence: None)
  Receive Date: 20250703
  Receipt Date: 20250703
  Transmission Date: 20251021
  Serious: Yes (Life-Threatening)
  Sender: FDA-CTU
  Company Number: None

PATIENT
  Age: 91 Year
  Sex: Female
  Weight: 39.6 kg

DRUGS (1)
  1. CEFTRIAXONE SODIUM [Suspect]
     Active Substance: CEFTRIAXONE SODIUM
     Indication: Urinary tract infection
     Route: 042
     Dates: start: 20250516, end: 20250516

REACTIONS (4)
  - Agonal respiration [None]
  - Arrhythmia [None]
  - Pulseless electrical activity [None]
  - Post procedural complication [None]

NARRATIVE: CASE EVENT DATE: 20250516
